FAERS Safety Report 10016667 (Version 3)
Quarter: 2014Q1

REPORT INFORMATION
  Report Type: Spontaneous
  Country: IN (occurrence: IN)
  Receive Date: 20140317
  Receipt Date: 20140325
  Transmission Date: 20141002
  Serious: Yes (Other)
  Sender: FDA-Public Use
  Company Number: IN-009507513-1403IND007424

PATIENT
  Sex: Female

DRUGS (2)
  1. JANUVIA [Suspect]
     Indication: DIABETES MELLITUS
     Dosage: 100 MG, QD
     Route: 048
  2. VITAMINS (UNSPECIFIED) [Concomitant]
     Indication: ASTHENIA

REACTIONS (2)
  - Gastrointestinal disorder [Not Recovered/Not Resolved]
  - Eye pain [Not Recovered/Not Resolved]
